FAERS Safety Report 24620679 (Version 1)
Quarter: 2024Q4

REPORT INFORMATION
  Report Type: Spontaneous
  Country: US (occurrence: None)
  Receive Date: 20241114
  Receipt Date: 20241114
  Transmission Date: 20250114
  Serious: Yes (Other)
  Sender: Public
  Company Number: None

PATIENT
  Age: 64 Year
  Sex: Female

DRUGS (1)
  1. ADBRY [Suspect]
     Active Substance: TRALOKINUMAB-LDRM
     Indication: Dermatitis atopic
     Dosage: OTHER FREQUENCY : EVERY 2 WEEKS;?
     Route: 058
     Dates: start: 20240501

REACTIONS (6)
  - Ocular hyperaemia [None]
  - Eye pruritus [None]
  - Lacrimation increased [None]
  - Eye swelling [None]
  - Vision blurred [None]
  - Visual impairment [None]

NARRATIVE: CASE EVENT DATE: 20241114
